FAERS Safety Report 8185171-6 (Version None)
Quarter: 2012Q1

REPORT INFORMATION
  Report Type: 
  Country: None (occurrence: None)
  Receive Date: 20120305
  Receipt Date: 20120228
  Transmission Date: 20120608
  Serious: Yes (Hospitalization)
  Sender: FDA-Public Use
  Company Number: US-ACTELION-A-US2012-60778

PATIENT

DRUGS (2)
  1. ASPIRIN [Concomitant]
  2. EPOPROSTENOL SODIUM [Suspect]
     Indication: PULMONARY ARTERIAL HYPERTENSION
     Dosage: 10 NG/KG, PER MIN
     Route: 042
     Dates: start: 20120108

REACTIONS (3)
  - SMALL INTESTINAL OBSTRUCTION [None]
  - ABDOMINAL HERNIA REPAIR [None]
  - UMBILICAL HERNIA [None]
